FAERS Safety Report 6244678-9 (Version None)
Quarter: 2009Q2

REPORT INFORMATION
  Report Type: 
  Country: None (occurrence: None)
  Receive Date: 20090619
  Receipt Date: 20090430
  Transmission Date: 20091009
  Serious: No
  Sender: FDA-Public Use
  Company Number: ALL1-2009-01210

PATIENT
  Sex: Female
  Weight: 63.5 kg

DRUGS (9)
  1. ADDERALL 10 [Suspect]
     Indication: ATTENTION DEFICIT/HYPERACTIVITY DISORDER
     Dosage: 1X/DAY:QD, ORAL
     Route: 048
     Dates: start: 20070101, end: 20081201
  2. VYVANSE [Suspect]
     Indication: ATTENTION DEFICIT/HYPERACTIVITY DISORDER
     Dosage: 40 MG, 1X/DAY:QD, ORAL ; 60 MG, 1X/DAY:QD, ORAL
     Route: 048
     Dates: start: 20081201, end: 20090209
  3. VYVANSE [Suspect]
     Indication: ATTENTION DEFICIT/HYPERACTIVITY DISORDER
     Dosage: 40 MG, 1X/DAY:QD, ORAL ; 60 MG, 1X/DAY:QD, ORAL
     Route: 048
     Dates: start: 20090209
  4. B12 (CYANOCOBALAMIN-TANNIN COMPLEX) [Concomitant]
  5. OMEGA 3 FISH OIL (FISH OIL) [Concomitant]
  6. MSM (METHYLSULFONYLMETHANE) [Concomitant]
  7. UNSPECIFED HERBAL [Concomitant]
  8. UNSPECIFIED INHALER INHALATION GAS [Concomitant]
  9. VITAMINS NOS (VITAMINS NOS) [Concomitant]

REACTIONS (1)
  - VAGINAL ODOUR [None]
